FAERS Safety Report 17038880 (Version 1)
Quarter: 2019Q4

REPORT INFORMATION
  Report Type: Spontaneous
  Country: JP (occurrence: JP)
  Receive Date: 20191115
  Receipt Date: 20191115
  Transmission Date: 20200122
  Serious: Yes (Hospitalization)
  Sender: FDA-Public Use
  Company Number: JP-ELI_LILLY_AND_COMPANY-JP201911003353

PATIENT
  Age: 75 Year
  Sex: Male

DRUGS (1)
  1. CYRAMZA [Suspect]
     Active Substance: RAMUCIRUMAB
     Indication: HEPATIC CANCER
     Dosage: 6.4 MG/KG, CYCLICAL
     Route: 041
     Dates: start: 20191021, end: 20191021

REACTIONS (1)
  - Hepatic hydrothorax [Recovering/Resolving]
